FAERS Safety Report 4992042-2 (Version None)
Quarter: 2006Q2

REPORT INFORMATION
  Report Type: 
  Country: None (occurrence: None)
  Receive Date: 20060504
  Receipt Date: 20060428
  Transmission Date: 20061013
  Serious: Yes (Life-Threatening, Hospitalization, Other)
  Sender: FDA-Public Use
  Company Number: US-MERCK-0605USA00151

PATIENT
  Sex: Male

DRUGS (9)
  1. VYTORIN [Suspect]
     Indication: CORONARY ARTERY DISEASE
     Route: 048
     Dates: end: 20060101
  2. PROTONIX [Concomitant]
     Route: 065
  3. METOPROLOL [Concomitant]
     Route: 065
  4. WELCHOL [Concomitant]
     Route: 065
  5. PLAQUENIL [Concomitant]
     Route: 065
  6. OMEGA-3 MARINE TRIGLYCERIDES [Concomitant]
     Route: 065
  7. PRANDIN [Concomitant]
     Route: 065
  8. PREDNISONE [Concomitant]
     Route: 065
  9. ALTACE [Concomitant]
     Route: 065

REACTIONS (1)
  - IDIOPATHIC THROMBOCYTOPENIC PURPURA [None]
